FAERS Safety Report 10120610 (Version 2)
Quarter: 2015Q2

REPORT INFORMATION
  Report Type: Report from Study
  Country: SI (occurrence: SI)
  Receive Date: 20140425
  Receipt Date: 20150429
  Transmission Date: 20150821
  Serious: Yes (Hospitalization)
  Sender: FDA-Public Use
  Company Number: PHHY2014SI049825

PATIENT
  Age: 31 Year
  Sex: Female

DRUGS (1)
  1. EXTAVIA [Suspect]
     Active Substance: INTERFERON BETA-1B
     Indication: MULTIPLE SCLEROSIS
     Dosage: 1 ML, QOD (EVERY 48 HOURS)
     Route: 058
     Dates: start: 2013, end: 201412

REACTIONS (6)
  - Optic neuritis [Recovering/Resolving]
  - Demyelination [Unknown]
  - Multiple sclerosis relapse [Unknown]
  - Eye pain [Not Recovered/Not Resolved]
  - Vision blurred [Recovering/Resolving]
  - Visual acuity reduced [Not Recovered/Not Resolved]

NARRATIVE: CASE EVENT DATE: 2014
